FAERS Safety Report 14928798 (Version 1)
Quarter: 2018Q2

REPORT INFORMATION
  Report Type: Report from Study
  Country: FR (occurrence: FR)
  Receive Date: 20180523
  Receipt Date: 20180523
  Transmission Date: 20180711
  Serious: Yes (Hospitalization)
  Sender: FDA-Public Use
  Company Number: FR-PFIZER INC-2017146419

PATIENT
  Age: 60 Year
  Sex: Male
  Weight: 95 kg

DRUGS (6)
  1. AXITINIB [Suspect]
     Active Substance: AXITINIB
     Dosage: 14 MG, 1X/DAY
     Route: 048
     Dates: start: 20160208, end: 20161215
  2. BISOPROLOL [Concomitant]
     Active Substance: BISOPROLOL
     Indication: HYPERTENSION
     Dosage: 6.25 MG, DAILY
     Route: 048
  3. AXITINIB [Suspect]
     Active Substance: AXITINIB
     Dosage: 10 MG, 1X/DAY
     Route: 048
     Dates: start: 20170102, end: 20170330
  4. AMIODARONE [Concomitant]
     Active Substance: AMIODARONE
     Indication: ARRHYTHMIA
     Dosage: 200 MG, DAILY
     Route: 048
  5. AXITINIB [Suspect]
     Active Substance: AXITINIB
     Indication: PAPILLARY RENAL CELL CARCINOMA
     Dosage: 10 MG, 1X/DAY
     Route: 048
     Dates: start: 20160111, end: 20160207
  6. ATORVASTATIN [Concomitant]
     Active Substance: ATORVASTATIN
     Indication: HYPERCHOLESTEROLAEMIA
     Dosage: 10 MG, DAILY
     Route: 048

REACTIONS (2)
  - Peritoneal haemorrhage [Recovered/Resolved]
  - Abdominal pain [Recovered/Resolved]

NARRATIVE: CASE EVENT DATE: 20170330
